FAERS Safety Report 10100706 (Version 1)
Quarter: 2014Q2

REPORT INFORMATION
  Report Type: Spontaneous
  Country: US (occurrence: US)
  Receive Date: 20140423
  Receipt Date: 20140423
  Transmission Date: 20141212
  Serious: Yes (Death)
  Sender: FDA-Public Use
  Company Number: CHPA2014US005630

PATIENT
  Sex: Female

DRUGS (2)
  1. KERI SHEA BUTTER [Suspect]
     Route: 061
  2. AVEENO [Concomitant]

REACTIONS (1)
  - Death [Fatal]
